FAERS Safety Report 9549251 (Version 2)
Quarter: 2013Q4

REPORT INFORMATION
  Report Type: Spontaneous
  Country: FR (occurrence: None)
  Receive Date: 20130919
  Receipt Date: 20131101
  Transmission Date: 20140711
  Serious: Yes (Death, Hospitalization, Other)
  Sender: FDA-Public Use
  Company Number: AXC-2013-000466

PATIENT
  Age: 41 Year
  Sex: Female

DRUGS (53)
  1. DELURSAN (URSODEOXYCHOLIC ACID) TABLET [Suspect]
     Indication: PRODUCT USED FOR UNKNOWN INDICATION
     Dosage: 3 DF, BID, ORAL
     Route: 048
     Dates: start: 20130605, end: 20130708
  2. FORTUM [Suspect]
     Indication: PRODUCT USED FOR UNKNOWN INDICATION
     Dosage: 1 DF, QID, INTRAVENOUS
     Route: 042
     Dates: start: 20130621, end: 20130809
  3. FLAGYL [Suspect]
     Indication: PRODUCT USED FOR UNKNOWN INDICATION
     Route: 048
     Dates: start: 20130712, end: 201308
  4. GENTAMICINE [Suspect]
     Indication: PRODUCT USED FOR UNKNOWN INDICATION
     Route: 042
     Dates: start: 20130809, end: 20130811
  5. AMBISOME [Suspect]
     Indication: PRODUCT USED FOR UNKNOWN INDICATION
     Route: 042
     Dates: start: 20130709, end: 20130811
  6. BACTRIM [Suspect]
     Indication: PRODUCT USED FOR UNKNOWN INDICATION
     Dosage: 2 DF, 3X/WEEKLY, ITRAVENOUS
     Route: 042
     Dates: start: 20130724, end: 20130809
  7. NOXAFIL [Suspect]
     Indication: PRODUCT USED FOR UNKNOWN INDICATION
     Route: 048
     Dates: start: 20130619, end: 20130708
  8. CANCIDAS [Suspect]
     Indication: PRODUCT USED FOR UNKNOWN INDICATION
     Route: 042
     Dates: start: 20130709, end: 20130709
  9. FOLINIC ACID [Suspect]
     Indication: PRODUCT USED FOR UNKNOWN INDICATION
     Dosage: 50MG, 3X/WK, INTRAVENOUS
     Route: 042
     Dates: start: 20130724, end: 20130809
  10. ZELITREX [Suspect]
     Indication: PRODUCT USED FOR UNKNOWN INDICATION
     Route: 042
     Dates: start: 20130709, end: 20130812
  11. CYMEVAN (GANCICLOVIR SODIUM) UNKNOWN [Suspect]
     Indication: PRODUCT USED FOR UNKNOWN INDICATION
     Route: 042
     Dates: start: 20130726, end: 201308
  12. FOSCAVIR [Suspect]
     Indication: PRODUCT USED FOR UNKNOWN INDICATION
     Dosage: 1 DF, BID, INTRAVENOUS
     Route: 042
     Dates: start: 20130808
  13. CLAIRYG [Suspect]
     Indication: PRODUCT USED FOR UNKNOWN INDICATION
     Route: 042
  14. GRANOCYTE [Suspect]
     Indication: PRODUCT USED FOR UNKNOWN INDICATION
     Dates: start: 20130807
  15. SODIUM HEPARIN [Suspect]
     Indication: PRODUCT USED FOR UNKNOWN INDICATION
     Dosage: 7000 LU, QD, INTRAVENOUS
     Route: 042
     Dates: start: 20130605
  16. INEXIUM [Suspect]
     Indication: PRODUCT USED FOR UNKNOWN INDICATION
     Route: 042
     Dates: start: 20130709, end: 20130812
  17. SPASFON [Suspect]
     Indication: PRODUCT USED FOR UNKNOWN INDICATION
     Dosage: 2 DF, TID, INTRAVENOUS
     Dates: start: 20130619
  18. DEFIBROTIDE [Suspect]
     Indication: PRODUCT USED FOR UNKNOWN INDICATION
     Dosage: 25 MG/KG, QD, INTRAVENOUS
     Route: 042
     Dates: start: 20130605, end: 201308
  19. LARGACTIL [Suspect]
     Indication: PRODUCT USED FOR UNKNOWN INDICATION
     Dosage: 1 DF, QD, INTRAVENOUS
     Route: 042
     Dates: start: 20130619, end: 20130709
  20. TRANXENE [Suspect]
     Indication: PRODUCT USED FOR UNKNOWN INDICATION
     Dosage: 5 MG, QID PM, ORAL
     Route: 048
     Dates: start: 20130622, end: 20130709
  21. OXYNORM [Suspect]
     Indication: PRODUCT USED FOR UNKNOWN INDICATION
     Route: 042
     Dates: start: 20130619
  22. EXACYL [Suspect]
     Indication: PRODUCT USED FOR UNKNOWN INDICATION
     Dosage: 1 DF, TID, INTRAVENOUS
     Route: 042
     Dates: start: 20130727, end: 20130812
  23. PERFALGAN [Suspect]
     Indication: PRODUCT USED FOR UNKNOWN INDICATION
     Dosage: 1 G, TID, INTRAVENOUS
     Route: 042
     Dates: start: 20130710, end: 20130812
  24. SOLUMEDROL [Suspect]
     Indication: PRODUCT USED FOR UNKNOWN INDICATION
     Route: 042
     Dates: start: 20130709
  25. DROLEPTAN [Suspect]
     Indication: PRODUCT USED FOR UNKNOWN INDICATION
     Dosage: 0.625 MG, QID, INTRAVENSIOUS
     Route: 042
     Dates: start: 20130712, end: 20130717
  26. ULTIVA [Suspect]
     Indication: PRODUCT USED FOR UNKNOWN INDICATION
     Dosage: 100GBQ, Q1H, INTRAVENOUS
     Route: 042
     Dates: start: 20130714, end: 20130717
  27. ATARAX [Suspect]
     Indication: PRODUCT USED FOR UNKNOWN INDICATION
     Route: 048
     Dates: start: 20130714
  28. LASILIX [Suspect]
     Indication: PRODUCT USED FOR UNKNOWN INDICATION
     Dosage: 40MG, BID, INTRAVENOUS
     Route: 042
     Dates: start: 20130716, end: 20130809
  29. SEROPLEX [Suspect]
     Indication: PRODUCT USED FOR UNKNOWN INDICATION
     Route: 048
     Dates: start: 20130721
  30. CERIS [Suspect]
     Indication: PRODUCT USED FOR UNKNOWN INDICATION
     Route: 048
     Dates: start: 20130807
  31. NOCTAMIDE [Suspect]
     Indication: PRODUCT USED FOR UNKNOWN INDICATION
     Dosage: 1 DF, QD, ORAL
     Route: 048
     Dates: start: 20130605, end: 20130708
  32. GENTAMICIN +COLISTIN (GENTAMICIN + COLISTIN) [Concomitant]
  33. VANCOMYCINE  MYLAN 9VANCOMYCIN HYDROCHLORIDE) [Concomitant]
  34. CIFLOX/00697201/(CIPROFLOXACIN) [Concomitant]
  35. TARGOCID (TEICOPLANIN) [Concomitant]
  36. MYCOSTATIN (NYSTATIN) [Concomitant]
  37. TRIFLUCAN (TEICOPLANIN) [Concomitant]
  38. ZOVIRAX [Concomitant]
  39. METHOTREXATE MYLAN (METHOTREXATE MYLAN) [Concomitant]
  40. ELVORINE (CALCIUM LEVOFOLINATE) [Concomitant]
  41. SANDIMMUN (CICLOSPORIN) INFUSION [Concomitant]
  42. MOPRAL/006661201/(OMEPRAZOLE) [Concomitant]
  43. OGASTORO (LANSOPRAZOLE) [Concomitant]
  44. GELOX (ALUMINUM HYDROXIDE, ALUMINUM SILICATE, MAGNESIUM HYDROXIDE) [Concomitant]
  45. SMECTA / 00837601/(ALUMINUM HYDROXIDE-MAGNESIUM CARBONATE GEL, ALUMINUM MAGNESIUM SILICATE, GLUCOSE MONOHYDRATE, GLYCYRRHIZA GLABRA) [Concomitant]
  46. MAGNESIUM SILICATE, GLUCOSE MONOHYDRATE, GLYCRRHIZA GLABRA) [Concomitant]
  47. LUTERAN (CHLORMADINONE ACETATE) [Concomitant]
  48. LEXOMIL (BROMAZEPAM) [Concomitant]
  49. ZOPHREN / 00955301/ (ONDANSETRON) [Concomitant]
  50. PRIMPERAN (METOCLOPRAMIDE HYDROCHLORIDE) [Concomitant]
  51. ACUPAN (NEFOPAM HYDROCHLORIDE) [Concomitant]
  52. TIORFAN (ACETORPHAN) UNKNOWN [Concomitant]
  53. LEVOCARNIL (LEVOCARNITINE) [Concomitant]

REACTIONS (7)
  - Toxic epidermal necrolysis [None]
  - Bladder disorder [None]
  - Haematuria [None]
  - Graft versus host disease in intestine [None]
  - Renal failure acute [None]
  - Hepatitis fulminant [None]
  - Oedema [None]
